FAERS Safety Report 16770829 (Version 1)
Quarter: 2019Q3

REPORT INFORMATION
  Report Type: Report from Study
  Country: JP (occurrence: JP)
  Receive Date: 20190904
  Receipt Date: 20190904
  Transmission Date: 20191005
  Serious: Yes (Death, Other)
  Sender: FDA-Public Use
  Company Number: JP-AMGEN-JPNCT2017008201

PATIENT
  Age: 62 Year
  Sex: Male

DRUGS (17)
  1. METHYCOOL [Concomitant]
     Active Substance: METHYLCOBALAMIN
     Indication: NEUROPATHY PERIPHERAL
     Dosage: 1.5 MILLIGRAM
     Route: 048
  2. PRECIPITATED CALCIUM CARBONATE [Concomitant]
     Active Substance: CALCIUM CARBONATE
     Indication: HYPOCALCAEMIA
     Dosage: 1500 MILLIGRAM
     Route: 048
  3. DARBEPOETIN ALFA [Suspect]
     Active Substance: DARBEPOETIN ALFA
     Dosage: 120 MICROGRAM, QWK
     Route: 058
     Dates: start: 20150929, end: 20160419
  4. CALFINA [Concomitant]
     Active Substance: ALFACALCIDOL
     Indication: OSTEOPOROSIS
     Dosage: 0.5 MICROGRAM
     Route: 048
     Dates: end: 20151005
  5. AMLODIPINE RATIOPHARM [Concomitant]
     Indication: HYPERTENSION
     Dosage: 5 MILLIGRAM
     Route: 048
     Dates: end: 20151005
  6. METHYCOOL [Concomitant]
     Active Substance: METHYLCOBALAMIN
     Dosage: 1.5 MG
     Route: 048
  7. CEFMETAZOLE NA [Concomitant]
     Active Substance: CEFMETAZOLE
     Indication: PNEUMONIA
     Dosage: 2 G
     Route: 065
     Dates: start: 20150616, end: 20150624
  8. RISUMIC [Concomitant]
     Active Substance: AMEZINIUM METILSULFATE
     Indication: PROCEDURAL HYPOTENSION
     Dosage: 10 MG
     Route: 048
     Dates: start: 20150928
  9. AMLODIPINE RATIOPHARM [Concomitant]
     Indication: HYPERTENSION
     Dosage: 5 MILLIGRAM
     Route: 048
     Dates: end: 20151005
  10. KALIMATE [Concomitant]
     Active Substance: CALCIUM POLYSTYRENE SULFONATE
     Indication: HYPERKALAEMIA
     Dosage: 25 GRAM
     Route: 048
  11. FEBURIC [Concomitant]
     Active Substance: FEBUXOSTAT
     Indication: GOUT
     Dosage: 10 MILLIGRAM
     Route: 048
  12. FUROSEMIDE. [Concomitant]
     Active Substance: FUROSEMIDE
     Indication: CHRONIC KIDNEY DISEASE
     Dosage: 20 MILLIGRAM
     Route: 048
  13. FUROSEMIDE. [Concomitant]
     Active Substance: FUROSEMIDE
     Dosage: 20 MG
     Route: 048
  14. MEROPENEM. [Concomitant]
     Active Substance: MEROPENEM
     Indication: PNEUMONIA
     Dosage: 1.0 G
     Route: 065
     Dates: start: 20160423, end: 20160507
  15. DARBEPOETIN ALFA [Suspect]
     Active Substance: DARBEPOETIN ALFA
     Indication: MYELODYSPLASTIC SYNDROME
     Dosage: 120 MICROGRAM, QWK
     Route: 058
     Dates: start: 20150526, end: 20150915
  16. FEBURIC [Concomitant]
     Active Substance: FEBUXOSTAT
     Dosage: 10 MG
     Route: 048
  17. PRECIPITATED CALCIUM CARBONATE [Concomitant]
     Active Substance: CALCIUM CARBONATE
     Dosage: 1500 MG
     Route: 048

REACTIONS (3)
  - Disease progression [Fatal]
  - Pneumonia [Recovered/Resolved]
  - Pneumonia [Recovered/Resolved]

NARRATIVE: CASE EVENT DATE: 20150616
